FAERS Safety Report 15384636 (Version 1)
Quarter: 2018Q3

REPORT INFORMATION
  Report Type: Spontaneous
  Country: US (occurrence: US)
  Receive Date: 20180907
  Receipt Date: 20180907
  Transmission Date: 20181010
  Serious: Yes (Hospitalization)
  Sender: FDA-Public Use
  Company Number: None

PATIENT
  Age: 52 Year
  Sex: Female

DRUGS (1)
  1. COPAXONE [Suspect]
     Active Substance: GLATIRAMER ACETATE
     Indication: MULTIPLE SCLEROSIS
     Dosage: ?          OTHER FREQUENCY:OTHER
     Route: 058
     Dates: start: 201801

REACTIONS (3)
  - Inflammatory bowel disease [None]
  - Colitis ulcerative [None]
  - Neutropenic colitis [None]

NARRATIVE: CASE EVENT DATE: 20180907
